FAERS Safety Report 14014350 (Version 1)
Quarter: 2017Q3

REPORT INFORMATION
  Report Type: Spontaneous
  Country: US (occurrence: US)
  Receive Date: 20170927
  Receipt Date: 20170927
  Transmission Date: 20171128
  Serious: Yes (Other)
  Sender: FDA-Public Use
  Company Number: US-SUN PHARMACEUTICAL INDUSTRIES LTD-2017US-150440

PATIENT
  Age: 46 Year
  Sex: Female

DRUGS (3)
  1. DIVALPROEX [Suspect]
     Active Substance: DIVALPROEX SODIUM
     Indication: SEIZURE
     Dosage: 1 DF, BID (MORNING, NIGHT)
     Route: 065
     Dates: start: 20170913
  2. DIVALPROEX [Suspect]
     Active Substance: DIVALPROEX SODIUM
     Dosage: UNK UNK, BID (MORNING, NIGHT)
     Route: 065
     Dates: end: 20170913
  3. DILANTIN [Concomitant]
     Active Substance: PHENYTOIN
     Indication: PRODUCT USED FOR UNKNOWN INDICATION
     Dosage: UNK
     Route: 065

REACTIONS (5)
  - Dysphonia [Not Recovered/Not Resolved]
  - Product quality issue [Unknown]
  - Pharyngeal erythema [Recovering/Resolving]
  - Aphonia [Recovering/Resolving]
  - Enlarged uvula [Not Recovered/Not Resolved]

NARRATIVE: CASE EVENT DATE: 201709
